FAERS Safety Report 8331484 (Version 2)
Quarter: 2012Q4

REPORT INFORMATION
  Report Type: 
  Country: US (occurrence: None)
  Receive Date: 20120104
  Receipt Date: 20121210
  Transmission Date: 20130627
  Serious: Yes (Death)
  Sender: FDA-Public Use
  Company Number: DSA_48635_2011

PATIENT
  Age: 56 Year
  Sex: Male

DRUGS (2)
  1. DILTIAZEM HYDROCHLORIDE [Suspect]
     Indication: COMPLETED SUICIDE
     Dosage: (DF Oral)
     Route: 048
  2. POTASSIUM CHLORIDE [Suspect]
     Indication: PRODUCT USED FOR UNKNOWN INDICATION
     Dosage: (DF Oral)
     Route: 048

REACTIONS (4)
  - Completed suicide [None]
  - Intentional drug misuse [None]
  - Toxicity to various agents [None]
  - Intentional overdose [None]
